FAERS Safety Report 6819524-2 (Version None)
Quarter: 2010Q3

REPORT INFORMATION
  Report Type: 
  Country: None (occurrence: None)
  Receive Date: 20100707
  Receipt Date: 20100629
  Transmission Date: 20110219
  Serious: Yes (Other)
  Sender: FDA-Public Use
  Company Number: PHEH2009US14523

PATIENT
  Sex: Female

DRUGS (11)
  1. EXELON [Suspect]
     Indication: DEPRESSION
     Dosage: UNK, UNK
     Route: 062
  2. EXELON [Suspect]
     Indication: SLEEP DISORDER
  3. ESTROGEN NOS [Suspect]
  4. PROZAC [Suspect]
  5. PROVIGIL [Concomitant]
     Dosage: UNK, UNK
  6. SOMA [Concomitant]
  7. DARVOCET [Concomitant]
  8. ATIVAN [Concomitant]
  9. PRILOSEC [Concomitant]
  10. VYTORIN [Concomitant]
  11. VESICARE [Concomitant]

REACTIONS (7)
  - APPLICATION SITE ERYTHEMA [None]
  - APPLICATION SITE RASH [None]
  - DERMATITIS CONTACT [None]
  - DRUG INTOLERANCE [None]
  - MEMORY IMPAIRMENT [None]
  - SKIN IRRITATION [None]
  - THROMBOSIS [None]
